FAERS Safety Report 8890473 (Version 1)
Quarter: 2012Q4

REPORT INFORMATION
  Report Type: 
  Country: US (occurrence: US)
  Receive Date: 20121107
  Receipt Date: 20121107
  Transmission Date: 20130627
  Serious: No
  Sender: FDA-Public Use
  Company Number: US-BAYER-2012-116541

PATIENT
  Age: 41 Year
  Sex: Male
  Weight: 79.37 kg

DRUGS (7)
  1. BETASERON [Suspect]
     Dosage: UNK, QOD
     Route: 058
  2. AMANTADINE [Concomitant]
     Dosage: 100 mg, UNK
     Route: 048
  3. CENTRUM [Concomitant]
     Route: 048
  4. VITAMIN B12 [CYANOCOBALAMIN] [Concomitant]
     Dosage: 50 ?g, UNK
     Route: 048
  5. VITAMIN B6 [Concomitant]
     Dosage: 50 mg, UNK
     Route: 048
  6. LORATADINE [Concomitant]
     Dosage: 10 mg, UNK
     Route: 048
  7. SUDAFED [Concomitant]
     Dosage: 30 mg, UNK
     Route: 048

REACTIONS (4)
  - Injection site pain [Unknown]
  - Headache [Unknown]
  - Back pain [Unknown]
  - Neck pain [Unknown]
